FAERS Safety Report 4837269-5 (Version None)
Quarter: 2005Q4

REPORT INFORMATION
  Report Type: 
  Country: None (occurrence: None)
  Receive Date: 20051122
  Receipt Date: 20051024
  Transmission Date: 20060501
  Serious: Yes (Death)
  Sender: FDA-Public Use
  Company Number: 2005-CZ-00959

PATIENT
  Sex: Male

DRUGS (8)
  1. QVAR 40 [Suspect]
     Dosage: 2 PUFFS TDS 250 MCG ACTUATION
  2. SALBUTAMOL [Suspect]
     Dosage: 5 MG/2.5 ML QDS
  3. WARFARIN [Suspect]
     Dosage: 3 MG
     Dates: start: 20000418
  4. FUROSEMIDE [Suspect]
     Dosage: 40 MG
     Dates: start: 20011129
  5. PREDNISOLONE [Suspect]
     Dosage: 3 TABLETS DAILY 1 MG
     Dates: start: 20000606
  6. TIOTROPIUM BROMIDE [Suspect]
     Dosage: 18 MCG RESPIRATORY (INHALATION)
     Route: 055
     Dates: start: 20030115
  7. RAMIPRIL [Suspect]
     Dosage: 2.5 MG OD
     Dates: start: 20001023
  8. THEOPHYLLINE [Suspect]
     Dosage: 1 TAB/12 HOURS 400 MG
     Dates: start: 20001023

REACTIONS (1)
  - CHRONIC OBSTRUCTIVE PULMONARY DISEASE [None]
